FAERS Safety Report 7753505-X (Version None)
Quarter: 2011Q3

REPORT INFORMATION
  Report Type: 
  Country: None (occurrence: None)
  Receive Date: 20110915
  Receipt Date: 20110906
  Transmission Date: 20111222
  Serious: Yes (Hospitalization)
  Sender: FDA-Public Use
  Company Number: CH-GENZYME-CLOF-1001780

PATIENT
  Sex: Male
  Weight: 135 kg

DRUGS (6)
  1. FOSCAVIR [Concomitant]
     Indication: CYTOMEGALOVIRUS TEST POSITIVE
     Dosage: UNK
     Route: 065
  2. CYCLOSPORINE [Concomitant]
     Indication: PROPHYLAXIS AGAINST TRANSPLANT REJECTION
     Dosage: 200 MG, UNK
     Route: 048
     Dates: start: 20110828, end: 20110904
  3. VALACICLOVIR [Concomitant]
     Indication: ANTIVIRAL PROPHYLAXIS
     Dosage: 1000 MG, UNK
     Route: 048
     Dates: start: 20110503, end: 20110904
  4. EVOLTRA [Suspect]
     Indication: ACUTE LEUKAEMIA
     Dosage: UNK
     Route: 065
  5. VORICONAZOLE [Concomitant]
     Indication: ANTIFUNGAL TREATMENT
     Dosage: 400 MG, UNK
     Route: 048
     Dates: start: 20110511, end: 20110904
  6. URSO FALK [Concomitant]
     Indication: HEPATIC FUNCTION ABNORMAL
     Dosage: 750 MG, UNK
     Route: 048
     Dates: start: 20110828, end: 20110904

REACTIONS (1)
  - CYSTITIS HAEMORRHAGIC [None]
